FAERS Safety Report 6455855-6 (Version None)
Quarter: 2009Q4

REPORT INFORMATION
  Report Type: 
  Country: None (occurrence: None)
  Receive Date: 20091125
  Receipt Date: 20091116
  Transmission Date: 20100525
  Serious: Yes (Hospitalization)
  Sender: FDA-Public Use
  Company Number: US-BIOGENIDEC-2009BI037444

PATIENT
  Age: 45 Year
  Sex: Male

DRUGS (1)
  1. TYSABRI [Suspect]
     Indication: MULTIPLE SCLEROSIS
     Route: 042
     Dates: start: 20070913

REACTIONS (8)
  - ABASIA [None]
  - AGRAPHIA [None]
  - APHASIA [None]
  - DYSARTHRIA [None]
  - FATIGUE [None]
  - INFLUENZA [None]
  - MOBILITY DECREASED [None]
  - MUSCULAR WEAKNESS [None]
